FAERS Safety Report 19267732 (Version 1)
Quarter: 2021Q2

REPORT INFORMATION
  Report Type: Spontaneous
  Country: CA (occurrence: CA)
  Receive Date: 20210517
  Receipt Date: 20210517
  Transmission Date: 20210717
  Serious: Yes (Other)
  Sender: FDA-Public Use
  Company Number: CA-SAMSUNG BIOEPIS-SB-2021-11646

PATIENT
  Age: 26 Year
  Sex: Female

DRUGS (1)
  1. INFLIXIMAB [Suspect]
     Active Substance: INFLIXIMAB
     Indication: CROHN^S DISEASE
     Route: 042

REACTIONS (9)
  - Mobility decreased [Recovered/Resolved]
  - Uveitis [Recovered/Resolved]
  - Arthralgia [Recovered/Resolved]
  - Decreased appetite [Recovered/Resolved]
  - Migraine [Recovered/Resolved]
  - Depressed level of consciousness [Recovered/Resolved]
  - Condition aggravated [Recovered/Resolved]
  - Disease recurrence [Recovered/Resolved]
  - Muscular weakness [Recovered/Resolved]
